FAERS Safety Report 19081771 (Version 1)
Quarter: 2021Q2

REPORT INFORMATION
  Report Type: Spontaneous
  Country: US (occurrence: US)
  Receive Date: 20210401
  Receipt Date: 20210401
  Transmission Date: 20210717
  Serious: No
  Sender: FDA-Public Use
  Company Number: US-SA-2021SA105611

PATIENT
  Age: 59 Year
  Sex: Female

DRUGS (4)
  1. EZETIMIBE. [Concomitant]
     Active Substance: EZETIMIBE
  2. DUPIXENT [Suspect]
     Active Substance: DUPILUMAB
     Indication: DERMATITIS ATOPIC
     Dosage: 300 MG, QOW
     Route: 058
     Dates: start: 20180706
  3. MUPIROCIN. [Concomitant]
     Active Substance: MUPIROCIN
  4. LOSARTAN AND HYDROCHLOROTHIAZIDE [Concomitant]
     Active Substance: HYDROCHLOROTHIAZIDE\LOSARTAN POTASSIUM

REACTIONS (2)
  - Dermatitis atopic [Not Recovered/Not Resolved]
  - Product dose omission issue [Unknown]
